FAERS Safety Report 9908485 (Version 1)
Quarter: 2014Q1

REPORT INFORMATION
  Report Type: Spontaneous
  Country: AU (occurrence: AU)
  Receive Date: 20140219
  Receipt Date: 20140219
  Transmission Date: 20141002
  Serious: Yes (Hospitalization)
  Sender: FDA-Public Use
  Company Number: AU-MYLANLABS-2014S1002688

PATIENT
  Age: 63 Year
  Sex: Male

DRUGS (7)
  1. ADRENALINE [Suspect]
  2. LEVOSIMENDAN [Suspect]
     Indication: CARDIOGENIC SHOCK
  3. DOBUTAMINE [Suspect]
     Indication: CARDIOGENIC SHOCK
  4. NORADRENALINE [Suspect]
     Indication: CARDIOGENIC SHOCK
  5. ADENOSINE [Concomitant]
  6. VERAPAMIL [Concomitant]
  7. SOTALOL [Concomitant]

REACTIONS (2)
  - Supraventricular tachycardia [Unknown]
  - Atrial fibrillation [Unknown]
